FAERS Safety Report 5614963-X (Version None)
Quarter: 2008Q1

REPORT INFORMATION
  Report Type: 
  Country: None (occurrence: None)
  Receive Date: 20080206
  Receipt Date: 20080122
  Transmission Date: 20080703
  Serious: Yes (Death)
  Sender: FDA-Public Use
  Company Number: US-KINGPHARMUSA00001-K200800106

PATIENT

DRUGS (3)
  1. AVINZA [Suspect]
  2. METHADONE HCL [Suspect]
  3. ACETAMINOPHEN W/DIPHENHYDRAMINE HYDROCHLORIDE [Suspect]

REACTIONS (1)
  - DEATH [None]
